FAERS Safety Report 20633085 (Version 1)
Quarter: 2022Q1

REPORT INFORMATION
  Report Type: Spontaneous
  Country: AU (occurrence: AU)
  Receive Date: 20220324
  Receipt Date: 20220324
  Transmission Date: 20220423
  Serious: Yes (Hospitalization)
  Sender: FDA-Public Use
  Company Number: AU-TEVA-2022-AU-2018766

PATIENT
  Age: 51 Year
  Sex: Female
  Weight: 57 kg

DRUGS (6)
  1. HYDROCHLOROTHIAZIDE [Interacting]
     Active Substance: HYDROCHLOROTHIAZIDE
     Indication: Product used for unknown indication
     Route: 048
  2. POTASSIUM CHLORIDE [Interacting]
     Active Substance: POTASSIUM CHLORIDE
     Indication: Product used for unknown indication
     Dosage: SUSTAINED-RELEASE TABLET; OVERDOSED LATER WITH 100 X 600MG TABLETS (60000MG)
     Route: 048
  3. THYROXINE [Interacting]
     Active Substance: LEVOTHYROXINE
     Indication: Product used for unknown indication
     Route: 048
  4. TRAMADOL [Interacting]
     Active Substance: TRAMADOL
     Indication: Product used for unknown indication
     Route: 048
  5. VENLAFAXINE [Interacting]
     Active Substance: VENLAFAXINE HYDROCHLORIDE
     Indication: Product used for unknown indication
     Route: 048
  6. AMILORIDE [Interacting]
     Active Substance: AMILORIDE
     Indication: Product used for unknown indication
     Route: 048

REACTIONS (7)
  - Gastrointestinal disorder [Unknown]
  - Neuromyopathy [Unknown]
  - Arrhythmia [Unknown]
  - Hyperkalaemia [Unknown]
  - Intentional overdose [Unknown]
  - Drug interaction [Unknown]
  - Alcohol interaction [Unknown]
